FAERS Safety Report 8550890 (Version 6)
Quarter: 2014Q1

REPORT INFORMATION
  Report Type: Report from Study
  Country: CA (occurrence: CA)
  Receive Date: 20120508
  Receipt Date: 20140121
  Transmission Date: 20141002
  Serious: Yes (Disabling, Other)
  Sender: FDA-Public Use
  Company Number: PHHY2012CA008562

PATIENT
  Age: 61 Year
  Sex: Female

DRUGS (4)
  1. SANDOSTATIN LAR [Suspect]
     Indication: NEUROENDOCRINE TUMOUR
     Dosage: 40 MG, PER MONTH
     Route: 030
     Dates: start: 201009
  2. SANDOSTATIN LAR [Suspect]
     Dosage: 30 MG, EVERY 3 WEEKS
     Route: 030
     Dates: start: 20101030
  3. SANDOSTATIN LAR [Suspect]
     Dosage: UNK UKN, UNK
     Dates: start: 201102
  4. SANDOSTATIN LAR [Suspect]
     Dosage: 30 MG, EVERY 2 WEEKS
     Route: 030
     Dates: end: 20140107

REACTIONS (16)
  - Crohn^s disease [Unknown]
  - Diverticulitis [Unknown]
  - Colitis [Unknown]
  - Pancreatic disorder [Unknown]
  - Cellulitis [Unknown]
  - Pain in extremity [Unknown]
  - Erythema [Unknown]
  - Local swelling [Unknown]
  - Diarrhoea [Unknown]
  - Sciatica [Unknown]
  - Viral infection [Unknown]
  - Nasopharyngitis [Unknown]
  - Abdominal pain upper [Not Recovered/Not Resolved]
  - Steatorrhoea [Unknown]
  - Abnormal faeces [Recovered/Resolved]
  - Abdominal pain [Unknown]
